FAERS Safety Report 6227161-6 (Version None)
Quarter: 2009Q2

REPORT INFORMATION
  Report Type: 
  Country: None (occurrence: None)
  Receive Date: 20090612
  Receipt Date: 20090526
  Transmission Date: 20091009
  Serious: No
  Sender: FDA-Public Use
  Company Number: US-ABBOTT-09P-163-0575861-00

PATIENT
  Sex: Male
  Weight: 72.64 kg

DRUGS (3)
  1. HUMIRA [Suspect]
     Indication: DRUG USE FOR UNKNOWN INDICATION
     Dates: start: 20090501, end: 20090501
  2. AMARYL [Concomitant]
     Indication: DIABETES MELLITUS
  3. LISINOOPRIL [Concomitant]
     Indication: HYPERTENSION

REACTIONS (1)
  - PAIN [None]
